FAERS Safety Report 23712695 (Version 8)
Quarter: 2025Q2

REPORT INFORMATION
  Report Type: Report from Study
  Country: US (occurrence: US)
  Receive Date: 20240405
  Receipt Date: 20250609
  Transmission Date: 20250716
  Serious: Yes (Hospitalization, Other)
  Sender: TAKEDA
  Company Number: US-TAKEDA-2024TUS032247

PATIENT
  Sex: Female
  Weight: 72 kg

DRUGS (41)
  1. TEDUGLUTIDE [Suspect]
     Active Substance: TEDUGLUTIDE
     Indication: Short-bowel syndrome
     Dosage: 3.6 MILLIGRAM, QD
  2. TEDUGLUTIDE [Suspect]
     Active Substance: TEDUGLUTIDE
     Dosage: 3.6 MILLIGRAM, QD
  3. TEDUGLUTIDE [Suspect]
     Active Substance: TEDUGLUTIDE
     Dosage: 0.36 MILLILITER, QD
  4. TEDUGLUTIDE [Suspect]
     Active Substance: TEDUGLUTIDE
     Dosage: 3.6 MILLIGRAM, QD
  5. TEDUGLUTIDE [Suspect]
     Active Substance: TEDUGLUTIDE
     Dosage: 4.4 MILLIGRAM, QD
  6. TEDUGLUTIDE [Suspect]
     Active Substance: TEDUGLUTIDE
     Dosage: 4.4 MILLIGRAM, QD
  7. VENTOLIN HFA [Concomitant]
     Active Substance: ALBUTEROL SULFATE
  8. ACETAMINOPHEN\HYDROCODONE [Concomitant]
     Active Substance: ACETAMINOPHEN\HYDROCODONE
  9. CLONAZEPAM [Concomitant]
     Active Substance: CLONAZEPAM
  10. THEOPHYLLINE [Concomitant]
     Active Substance: THEOPHYLLINE
  11. ACETAMINOPHEN\BUTALBITAL\CAFFEINE\CODEINE PHOSPHATE [Concomitant]
     Active Substance: ACETAMINOPHEN\BUTALBITAL\CAFFEINE\CODEINE PHOSPHATE
  12. ATROPINE\DIPHENOXYLATE [Concomitant]
     Active Substance: ATROPINE\DIPHENOXYLATE
  13. METOCLOPRAMIDE HYDROCHLORIDE [Concomitant]
     Active Substance: METOCLOPRAMIDE HYDROCHLORIDE
  14. MAXIPIME [Concomitant]
     Active Substance: CEFEPIME HYDROCHLORIDE
  15. CUBICIN [Concomitant]
     Active Substance: DAPTOMYCIN
  16. IMODIUM A-D [Concomitant]
     Active Substance: LOPERAMIDE HYDROCHLORIDE
  17. BENADRYL [Concomitant]
     Active Substance: DIPHENHYDRAMINE HYDROCHLORIDE
  18. BUTRANS [Concomitant]
     Active Substance: BUPRENORPHINE
  19. MYLANTA [Concomitant]
     Active Substance: ALUMINUM HYDROXIDE\DIMETHICONE\MAGNESIUM HYDROXIDE
  20. MAALOX ANTACID [Concomitant]
     Active Substance: ALUMINUM HYDROXIDE\DIMETHICONE\MAGNESIUM HYDROXIDE
  21. FIBERCON [Concomitant]
     Active Substance: CALCIUM POLYCARBOPHIL
  22. SODIUM BICARBONATE [Concomitant]
     Active Substance: SODIUM BICARBONATE
  23. REGLAN [Concomitant]
     Active Substance: METOCLOPRAMIDE HYDROCHLORIDE
  24. LOMOTIL [Concomitant]
     Active Substance: ATROPINE SULFATE\DIPHENOXYLATE HYDROCHLORIDE
  25. ALBUTEROL SULFATE [Concomitant]
     Active Substance: ALBUTEROL SULFATE
  26. BENTYL [Concomitant]
     Active Substance: DICYCLOMINE HYDROCHLORIDE
  27. FLOMAX [Concomitant]
     Active Substance: TAMSULOSIN HYDROCHLORIDE
  28. ASPIRIN [Concomitant]
     Active Substance: ASPIRIN
  29. ANUSOL HC [Concomitant]
     Active Substance: HYDROCORTISONE
  30. NEURONTIN [Concomitant]
     Active Substance: GABAPENTIN
  31. FLONASE [Concomitant]
     Active Substance: FLUTICASONE PROPIONATE
  32. PAXIL [Concomitant]
     Active Substance: PAROXETINE HYDROCHLORIDE
  33. TOPROL XL [Concomitant]
     Active Substance: METOPROLOL SUCCINATE
  34. Artificial tears [Concomitant]
  35. CARAFATE [Concomitant]
     Active Substance: SUCRALFATE
  36. PROTONIX [Concomitant]
     Active Substance: PANTOPRAZOLE SODIUM
  37. OPTIVAR [Concomitant]
     Active Substance: AZELASTINE HYDROCHLORIDE
  38. XALATAN [Concomitant]
     Active Substance: LATANOPROST
  39. ANORO ELLIPTA [Concomitant]
     Active Substance: UMECLIDINIUM BROMIDE\VILANTEROL TRIFENATATE
  40. PROVENTIL [Concomitant]
     Active Substance: ALBUTEROL
  41. TPN [Concomitant]
     Active Substance: AMINO ACIDS\DEXTROSE\ELECTROLYTES NOS\SOYBEAN OIL

REACTIONS (5)
  - Complication associated with device [Unknown]
  - Pyrexia [Unknown]
  - Oesophageal dilatation [Unknown]
  - Weight decreased [Unknown]
  - Decreased appetite [Unknown]
